FAERS Safety Report 6584212-7 (Version None)
Quarter: 2010Q1

REPORT INFORMATION
  Report Type: 
  Country: None (occurrence: None)
  Receive Date: 20100216
  Receipt Date: 20100111
  Transmission Date: 20100710
  Serious: No
  Sender: FDA-Public Use
  Company Number: US-ABBOTT-10P-163-0619196-00

PATIENT
  Sex: Female
  Weight: 86.26 kg

DRUGS (1)
  1. SIMCOR [Suspect]
     Indication: BLOOD CHOLESTEROL INCREASED
     Dosage: 500/20MG AT BEDTIME
     Route: 048
     Dates: start: 20090901, end: 20091225

REACTIONS (4)
  - NERVOUSNESS [None]
  - PALPITATIONS [None]
  - PARAESTHESIA [None]
  - TOOTH INFECTION [None]
